FAERS Safety Report 10881721 (Version 1)
Quarter: 2015Q1

REPORT INFORMATION
  Report Type: Report from Study
  Country: JP (occurrence: JP)
  Receive Date: 20150303
  Receipt Date: 20150303
  Transmission Date: 20150721
  Serious: Yes (Other)
  Sender: FDA-Public Use
  Company Number: JP-GLAXOSMITHKLINE-JP2014GSK045563

PATIENT
  Age: 13 Year
  Sex: Male

DRUGS (3)
  1. MELPHALAN [Suspect]
     Active Substance: MELPHALAN
     Indication: CYTOPENIA
     Dosage: 140 MG/M2, UNK
     Route: 065
  2. IRRADIATION [Suspect]
     Active Substance: UNSPECIFIED INGREDIENT
     Indication: PRODUCT USED FOR UNKNOWN INDICATION
     Route: 065
  3. FLUDARABINE [Suspect]
     Active Substance: FLUDARABINE PHOSPHATE
     Indication: CYTOPENIA
     Dosage: 125 MG/M2, UNK
     Route: 065

REACTIONS (2)
  - Off label use [Unknown]
  - Cytomegalovirus enteritis [Recovering/Resolving]
